FAERS Safety Report 6241565-7 (Version None)
Quarter: 2009Q2

REPORT INFORMATION
  Report Type: 
  Country: None (occurrence: None)
  Receive Date: 20090623
  Receipt Date: 20040316
  Transmission Date: 20091009
  Serious: Yes (Hospitalization)
  Sender: FDA-Public Use
  Company Number: ES-ROCHE-360033

PATIENT
  Sex: Male

DRUGS (41)
  1. DACLIZUMAB [Suspect]
     Dosage: BASELINE VISIT
     Route: 042
     Dates: start: 20031120
  2. DACLIZUMAB [Suspect]
     Route: 042
     Dates: start: 20031203
  3. MYCOPHENOLATE MOFETIL [Suspect]
     Dosage: DRUG: MYCOFENOLATE MOFETIL
     Route: 048
     Dates: start: 20031120, end: 20031209
  4. MYCOPHENOLATE MOFETIL [Suspect]
     Route: 048
     Dates: start: 20031220
  5. MYCOPHENOLATE MOFETIL [Suspect]
     Route: 048
     Dates: start: 20040729
  6. TACROLIMUS [Suspect]
     Route: 048
     Dates: start: 20031120
  7. TACROLIMUS [Suspect]
     Route: 048
     Dates: start: 20031128
  8. TACROLIMUS [Suspect]
     Route: 048
     Dates: start: 20031129
  9. TACROLIMUS [Suspect]
     Route: 048
     Dates: start: 20031201
  10. TACROLIMUS [Suspect]
     Route: 048
     Dates: start: 20031204
  11. TACROLIMUS [Suspect]
     Route: 048
     Dates: start: 20031206, end: 20031209
  12. TACROLIMUS [Suspect]
     Route: 048
     Dates: start: 20031218
  13. TACROLIMUS [Suspect]
     Route: 048
     Dates: start: 20031222
  14. TACROLIMUS [Suspect]
     Route: 048
     Dates: start: 20040105
  15. TACROLIMUS [Suspect]
     Route: 048
     Dates: start: 20040123
  16. TACROLIMUS [Suspect]
     Route: 048
     Dates: start: 20040223
  17. TACROLIMUS [Suspect]
     Route: 048
     Dates: start: 20040225
  18. TACROLIMUS [Suspect]
     Route: 048
     Dates: start: 20040312
  19. TACROLIMUS [Suspect]
     Route: 048
     Dates: start: 20040405
  20. TACROLIMUS [Suspect]
     Route: 048
     Dates: start: 20040416
  21. TACROLIMUS [Suspect]
     Route: 048
     Dates: start: 20040521
  22. TACROLIMUS [Suspect]
     Route: 048
     Dates: start: 20040604
  23. TACROLIMUS [Suspect]
     Route: 048
     Dates: start: 20040820
  24. TACROLIMUS [Suspect]
     Route: 048
     Dates: start: 20050222
  25. TACROLIMUS [Suspect]
     Route: 048
     Dates: start: 20060203
  26. TACROLIMUS [Suspect]
     Route: 048
     Dates: start: 20060926
  27. METHYLPREDNISOLONE [Suspect]
     Dosage: DRUG REPORTED: 6METILPREDNISOLONE
     Route: 042
     Dates: start: 20031120
  28. METHYLPREDNISOLONE [Suspect]
     Dosage: FORM: VIAL
     Route: 042
     Dates: start: 20031202, end: 20031208
  29. METHYLPREDNISOLONE [Suspect]
     Dosage: FORM: VIAL
     Route: 042
     Dates: start: 20031209
  30. METHYLPREDNISOLONE [Suspect]
     Route: 042
     Dates: start: 20031211, end: 20031221
  31. PREDNISONA [Suspect]
     Route: 048
     Dates: start: 20031121
  32. PREDNISONA [Suspect]
     Route: 048
     Dates: start: 20031128, end: 20031209
  33. PREDNISONA [Suspect]
     Route: 048
     Dates: start: 20031221
  34. PREDNISONA [Suspect]
     Route: 048
     Dates: start: 20040120
  35. PREDNISONA [Suspect]
     Route: 048
     Dates: start: 20050222
  36. PREDNISONA [Suspect]
     Route: 048
     Dates: start: 20050304
  37. SEPTRIN [Concomitant]
     Route: 048
     Dates: start: 20031122
  38. OMEPRAZOL [Concomitant]
     Route: 048
     Dates: start: 20031122
  39. FUROSEMIDE [Concomitant]
     Route: 048
     Dates: start: 20031122
  40. GANCICLOVIR [Concomitant]
     Dosage: FORM: VIAL
     Route: 042
     Dates: start: 20031209, end: 20031221
  41. ORTHOCLONE OKT3 [Concomitant]
     Route: 042
     Dates: start: 20031209, end: 20031220

REACTIONS (3)
  - ABDOMINAL PAIN [None]
  - CYTOMEGALOVIRUS ANTIGEN POSITIVE [None]
  - DIARRHOEA [None]
